FAERS Safety Report 5853528-1 (Version None)
Quarter: 2008Q3

REPORT INFORMATION
  Report Type: 
  Country: None (occurrence: None)
  Receive Date: 20080822
  Receipt Date: 20080612
  Transmission Date: 20090109
  Serious: No
  Sender: FDA-Public Use
  Company Number: US-BAYER-200812729BCC

PATIENT
  Age: 84 Year
  Sex: Male
  Weight: 64 kg

DRUGS (6)
  1. ALEVE [Suspect]
     Indication: MYALGIA
     Dosage: TOTAL DAILY DOSE: 220 MG  UNIT DOSE: 220 MG
     Route: 048
     Dates: start: 20080522, end: 20080611
  2. ATENOLOL [Concomitant]
     Route: 065
  3. LIPITOR [Concomitant]
     Route: 065
  4. QVAR 40 [Concomitant]
  5. PROAIR HFA [Concomitant]
  6. HYDROXYZINE [Concomitant]

REACTIONS (1)
  - WEIGHT INCREASED [None]
